FAERS Safety Report 9840098 (Version 6)
Quarter: 2015Q1

REPORT INFORMATION
  Report Type: Spontaneous
  Country: JP (occurrence: JP)
  Receive Date: 20140124
  Receipt Date: 20150318
  Transmission Date: 20150721
  Serious: Yes (Death, Life-Threatening, Hospitalization, Other)
  Sender: FDA-Public Use
  Company Number: JP-AMGEN-JPNSP2014004055

PATIENT
  Age: 45 Year
  Sex: Female
  Weight: 63 kg

DRUGS (21)
  1. 5-FU                               /00098801/ [Concomitant]
     Active Substance: FLUOROURACIL
     Dosage: 3800 MG, Q2WEEKS
     Route: 041
     Dates: start: 20131114, end: 20131226
  2. DECADRON [Concomitant]
     Active Substance: DEXAMETHASONE
     Indication: PROPHYLAXIS OF NAUSEA AND VOMITING
     Dosage: 40 MG, Q2WEEKS
     Route: 048
     Dates: start: 20130919, end: 20140315
  3. CALCIUM LEVOFOLINATE [Concomitant]
     Active Substance: LEVOLEUCOVORIN CALCIUM
     Indication: COLON CANCER
     Dosage: 325 MG, Q2WEEKS
     Route: 041
     Dates: start: 20130919, end: 20131021
  4. CALCIUM LEVOFOLINATE [Concomitant]
     Active Substance: LEVOLEUCOVORIN CALCIUM
     Dosage: 325 MG, Q2WEEKS
     Route: 041
     Dates: start: 20131114, end: 20131226
  5. CALCIUM LEVOFOLINATE [Concomitant]
     Active Substance: LEVOLEUCOVORIN CALCIUM
     Dosage: 325 MG, Q2WEEKS
     Route: 041
     Dates: start: 20140213, end: 20140313
  6. EMEND [Concomitant]
     Active Substance: APREPITANT
     Indication: PROPHYLAXIS OF NAUSEA AND VOMITING
     Dosage: 125 MG, Q2WEEKS
     Route: 048
     Dates: start: 20130919, end: 20140313
  7. CLARITH [Concomitant]
     Active Substance: CLARITHROMYCIN
     Indication: PROPHYLAXIS
     Dosage: 200 MG, Q2WEEKS
     Route: 048
     Dates: start: 20130919, end: 20140320
  8. 5-FU                               /00098801/ [Concomitant]
     Active Substance: FLUOROURACIL
     Dosage: 640 MG, Q2WEEKS
     Route: 040
     Dates: start: 20131114, end: 20131226
  9. VECTIBIX [Suspect]
     Active Substance: PANITUMUMAB
     Indication: COLON CANCER
     Dosage: 380 MG, Q2WEEKS
     Route: 041
     Dates: start: 20130919, end: 20131021
  10. VECTIBIX [Suspect]
     Active Substance: PANITUMUMAB
     Dosage: 380 MG, Q2WEEKS
     Route: 041
     Dates: start: 20131114, end: 20131226
  11. VECTIBIX [Suspect]
     Active Substance: PANITUMUMAB
     Dosage: 380 MG, Q2WEEKS
     Route: 041
     Dates: start: 20140213, end: 20140313
  12. 5-FU                               /00098801/ [Concomitant]
     Active Substance: FLUOROURACIL
     Indication: COLON CANCER
     Dosage: 640 MG, Q2WEEKS
     Route: 040
     Dates: start: 20130919, end: 20131021
  13. 5-FU                               /00098801/ [Concomitant]
     Active Substance: FLUOROURACIL
     Dosage: 640 MG, Q2WEEKS
     Route: 040
     Dates: start: 20140213, end: 20140313
  14. 5-FU                               /00098801/ [Concomitant]
     Active Substance: FLUOROURACIL
     Dosage: 3800 MG, Q2WEEKS
     Dates: start: 20140213, end: 20140313
  15. ALLEGRA [Concomitant]
     Active Substance: FEXOFENADINE HYDROCHLORIDE
     Indication: PROPHYLAXIS
     Dosage: 60 MG, Q2WEEKS
     Route: 048
     Dates: start: 20130919, end: 20140320
  16. ELPLAT [Concomitant]
     Active Substance: OXALIPLATIN
     Dosage: 130 MG, Q2WEEKS
     Route: 041
     Dates: start: 20140213, end: 20140313
  17. 5-FU                               /00098801/ [Concomitant]
     Active Substance: FLUOROURACIL
     Dosage: 3800 MG, Q2WEEKS
     Route: 041
     Dates: start: 20130919, end: 20131021
  18. ELPLAT [Concomitant]
     Active Substance: OXALIPLATIN
     Indication: COLON CANCER
     Dosage: 130 MG, Q2WEEKS
     Route: 041
     Dates: start: 20130919, end: 20131021
  19. ELPLAT [Concomitant]
     Active Substance: OXALIPLATIN
     Dosage: 130 MG, Q2WEEKS
     Route: 041
     Dates: start: 20131114, end: 20131226
  20. EMEND [Concomitant]
     Active Substance: APREPITANT
     Dosage: 80 MG, UNK
     Route: 048
     Dates: start: 20140314, end: 20140315
  21. MAGMITT [Concomitant]
     Active Substance: MAGNESIUM OXIDE
     Dosage: 1980 MG, UNK
     Route: 048
     Dates: start: 20130919, end: 20140313

REACTIONS (2)
  - Stomatitis [Fatal]
  - Gastrointestinal perforation [Fatal]

NARRATIVE: CASE EVENT DATE: 20140105
